FAERS Safety Report 18097263 (Version 1)
Quarter: 2020Q3

REPORT INFORMATION
  Report Type: Spontaneous
  Country: US (occurrence: US)
  Receive Date: 20200730
  Receipt Date: 20200730
  Transmission Date: 20201103
  Serious: Yes (Hospitalization)
  Sender: FDA-Public Use
  Company Number: None

PATIENT
  Age: 34 Year
  Sex: Male
  Weight: 180 kg

DRUGS (8)
  1. CEREBROMAX [Concomitant]
     Active Substance: HOMEOPATHICS
     Dates: start: 20200616, end: 20200715
  2. HA2CG EVOLUTION [Suspect]
     Active Substance: HOMEOPATHICS
     Indication: WEIGHT DECREASED
     Route: 060
     Dates: start: 20200616, end: 20200715
  3. SPINAL MAX [Concomitant]
     Dates: start: 20200616, end: 20200715
  4. DETOX II [Concomitant]
     Dates: start: 20200616, end: 20200715
  5. DETOX I [Concomitant]
     Dates: start: 20200616, end: 20200715
  6. APPETITE CONTROL [Suspect]
     Active Substance: HOMEOPATHICS
     Indication: OBESITY
     Route: 060
     Dates: start: 20200616, end: 20200715
  7. CRAVE CONTROL [Concomitant]
     Dates: start: 20200616, end: 20200715
  8. DETOX III [Concomitant]
     Dates: start: 20200616, end: 20200715

REACTIONS (2)
  - Ventricular fibrillation [None]
  - Cardiac arrest [None]

NARRATIVE: CASE EVENT DATE: 20200715
